FAERS Safety Report 11437355 (Version 1)
Quarter: 2015Q3

REPORT INFORMATION
  Report Type: Spontaneous
  Country: US (occurrence: US)
  Receive Date: 20150821
  Receipt Date: 20150821
  Transmission Date: 20151125
  Serious: No
  Sender: FDA-Public Use
  Company Number: US-ELI_LILLY_AND_COMPANY-US200703006132

PATIENT
  Age: 74 Year
  Sex: Female
  Weight: 90.7 kg

DRUGS (2)
  1. CYMBALTA [Suspect]
     Active Substance: DULOXETINE HYDROCHLORIDE
     Indication: PAIN
     Dosage: 90 MG, DAILY (1/D)
     Dates: start: 2006
  2. LEVAQUIN [Interacting]
     Active Substance: LEVOFLOXACIN
     Dosage: 500 UNK, DAILY (1/D)

REACTIONS (1)
  - Drug interaction [Unknown]

NARRATIVE: CASE EVENT DATE: 20070327
